FAERS Safety Report 10089859 (Version 1)
Quarter: 2014Q2

REPORT INFORMATION
  Report Type: Report from Study
  Country: US (occurrence: US)
  Receive Date: 20140421
  Receipt Date: 20140421
  Transmission Date: 20141212
  Serious: No
  Sender: FDA-Public Use
  Company Number: US-ABBVIE-13P-163-1088190-00

PATIENT
  Age: 9 Year
  Sex: Female

DRUGS (2)
  1. LUPRON (PEDIATRIC) [Suspect]
     Indication: PRECOCIOUS PUBERTY
     Dates: start: 2008, end: 2010
  2. SUPPRELIN [Suspect]
     Indication: PRODUCT USED FOR UNKNOWN INDICATION
     Dates: start: 201004

REACTIONS (1)
  - Device breakage [Unknown]
